FAERS Safety Report 5317856-0 (Version None)
Quarter: 2007Q2

REPORT INFORMATION
  Report Type: 
  Country: None (occurrence: None)
  Receive Date: 20070430
  Receipt Date: 20070420
  Transmission Date: 20071010
  Serious: Yes (Hospitalization)
  Sender: FDA-Public Use
  Company Number: GXKR2007GB03692

PATIENT
  Age: 65 Year
  Sex: Female

DRUGS (8)
  1. AMOXICILLIN [Suspect]
     Indication: TOOTH ABSCESS
     Dosage: 1G, ORAL
     Route: 048
  2. ASPIRIN [Concomitant]
  3. BENDROFLUMETHIAZIDE (BENDROFLUMETHIAZIDE) [Concomitant]
  4. METFORMIN HCL [Concomitant]
  5. ACETAMINOPHEN [Concomitant]
  6. SALBUTAMOL (SALBUTAMOL) [Concomitant]
  7. SIMVASTATIN [Concomitant]
  8. SALMETEROL [Concomitant]

REACTIONS (4)
  - DYSPHAGIA [None]
  - OEDEMA PERIPHERAL [None]
  - PARAESTHESIA ORAL [None]
  - RASH [None]
